FAERS Safety Report 23634589 (Version 1)
Quarter: 2024Q1

REPORT INFORMATION
  Report Type: Spontaneous
  Country: US (occurrence: US)
  Receive Date: 20240315
  Receipt Date: 20240315
  Transmission Date: 20240409
  Serious: No
  Sender: FDA-Public Use
  Company Number: US-WW-2023-US-002812

PATIENT
  Sex: Male

DRUGS (2)
  1. DUTASTERIDE [Suspect]
     Active Substance: DUTASTERIDE
     Route: 065
  2. PROSCAR [Suspect]
     Active Substance: FINASTERIDE
     Route: 065

REACTIONS (2)
  - Groin pain [Unknown]
  - Tendonitis [Unknown]
